FAERS Safety Report 8026523-4 (Version None)
Quarter: 2012Q1

REPORT INFORMATION
  Report Type: 
  Country: None (occurrence: None)
  Receive Date: 20120106
  Receipt Date: 20111230
  Transmission Date: 20120608
  Serious: Yes (Life-Threatening, Hospitalization)
  Sender: FDA-Public Use
  Company Number: ES-BRISTOL-MYERS SQUIBB COMPANY-16292062

PATIENT
  Age: 41 Year
  Sex: Female

DRUGS (3)
  1. STAVUDINE [Suspect]
     Dates: start: 19900701
  2. DIDANOSINE [Suspect]
     Dates: start: 19900701
  3. NEVIRAPINE [Suspect]
     Dates: start: 19900701

REACTIONS (1)
  - PORTAL HYPERTENSION [None]
